FAERS Safety Report 13962624 (Version 1)
Quarter: 2017Q3

REPORT INFORMATION
  Report Type: Spontaneous
  Country: US (occurrence: None)
  Receive Date: 20170912
  Receipt Date: 20170912
  Transmission Date: 20171128
  Serious: Yes (Hospitalization)
  Sender: FDA-Public Use
  Company Number: None

PATIENT
  Age: 31 Year
  Sex: Female
  Weight: 74.84 kg

DRUGS (1)
  1. INTRAUTERINE COPPER CONTRACEPTIVE [Suspect]
     Active Substance: COPPER

REACTIONS (4)
  - Pregnancy with contraceptive device [None]
  - Pain [None]
  - Device dislocation [None]
  - Exposure during pregnancy [None]

NARRATIVE: CASE EVENT DATE: 20170912
